FAERS Safety Report 7305701-3 (Version None)
Quarter: 2011Q1

REPORT INFORMATION
  Report Type: 
  Country: None (occurrence: None)
  Receive Date: 20110222
  Receipt Date: 20110217
  Transmission Date: 20110831
  Serious: Yes (Other)
  Sender: FDA-Public Use
  Company Number: A0904108A

PATIENT
  Age: 85 Year
  Sex: Female
  Weight: 63.6 kg

DRUGS (2)
  1. ADVAIR [Suspect]
     Indication: CHRONIC OBSTRUCTIVE PULMONARY DISEASE
     Dosage: 1BLS TWICE PER DAY
     Route: 055
     Dates: start: 20101213
  2. NO CONCURRENT MEDICATION [Concomitant]

REACTIONS (2)
  - VISUAL ACUITY REDUCED [None]
  - TREMOR [None]
